FAERS Safety Report 7114495-6 (Version None)
Quarter: 2010Q4

REPORT INFORMATION
  Report Type: 
  Country: None (occurrence: None)
  Receive Date: 20101119
  Receipt Date: 20101112
  Transmission Date: 20110411
  Serious: Yes (Death, Hospitalization, Other)
  Sender: FDA-Public Use
  Company Number: US-AMGEN-USASP2010003679

PATIENT

DRUGS (1)
  1. NPLATE [Suspect]
     Indication: PRODUCT USED FOR UNKNOWN INDICATION

REACTIONS (5)
  - CEREBROVASCULAR ACCIDENT [None]
  - DEATH [None]
  - DIALYSIS [None]
  - HYPOVOLAEMIA [None]
  - STEVENS-JOHNSON SYNDROME [None]
